FAERS Safety Report 9060449 (Version 2)
Quarter: 2013Q1

REPORT INFORMATION
  Report Type: Spontaneous
  Country: US (occurrence: US)
  Receive Date: 20130212
  Receipt Date: 20130327
  Transmission Date: 20140127
  Serious: No
  Sender: FDA-Public Use
  Company Number: US-009507513-1302USA004175

PATIENT
  Sex: Female

DRUGS (8)
  1. MIRTAZAPINE [Suspect]
     Indication: DEPRESSION
     Dosage: 15 MG, QD
     Route: 048
     Dates: start: 20101130
  2. MIRTAZAPINE [Suspect]
     Dosage: 30 MG, QD
     Route: 048
  3. ZOCOR [Concomitant]
  4. SYNTHROID [Concomitant]
  5. ZOLOFT [Concomitant]
     Dosage: 150 MG, UNK
     Dates: start: 1995
  6. HYZAAR [Concomitant]
  7. PREVACID [Concomitant]
  8. PERCOCET [Concomitant]

REACTIONS (2)
  - Movement disorder [Unknown]
  - Tardive dyskinesia [Unknown]
